FAERS Safety Report 6685889-8 (Version None)
Quarter: 2010Q2

REPORT INFORMATION
  Report Type: 
  Country: None (occurrence: None)
  Receive Date: 20100419
  Receipt Date: 20100415
  Transmission Date: 20101027
  Serious: Yes (Hospitalization, Other)
  Sender: FDA-Public Use
  Company Number: US-ASTRAZENECA-2007UW04112

PATIENT
  Age: 41 Year
  Sex: Male

DRUGS (42)
  1. SEROQUEL [Suspect]
     Indication: BIPOLAR DISORDER
     Dosage: 300 MG -600 MG,25-600 MG AT NIGHT
     Route: 048
     Dates: start: 20040315
  2. SEROQUEL [Suspect]
     Indication: INSOMNIA
     Dosage: 300 MG -600 MG,25-600 MG AT NIGHT
     Route: 048
     Dates: start: 20040315
  3. SEROQUEL [Suspect]
     Indication: DELUSION
     Dosage: 300 MG -600 MG,25-600 MG AT NIGHT
     Route: 048
     Dates: start: 20040315
  4. SEROQUEL [Suspect]
     Route: 048
     Dates: start: 20040506
  5. SEROQUEL [Suspect]
     Route: 048
     Dates: start: 20040506
  6. SEROQUEL [Suspect]
     Route: 048
     Dates: start: 20040506
  7. SEROQUEL [Suspect]
     Route: 048
     Dates: start: 20081205
  8. SEROQUEL [Suspect]
     Route: 048
     Dates: start: 20081205
  9. SEROQUEL [Suspect]
     Route: 048
     Dates: start: 20081205
  10. RISPERDAL [Suspect]
     Indication: BIPOLAR DISORDER
     Dosage: 4 TO 6 MG
     Route: 065
     Dates: start: 20020108, end: 20031012
  11. ZYPREXA [Suspect]
     Indication: BIPOLAR DISORDER
     Dosage: 10-20 MG
     Route: 065
     Dates: start: 20011018, end: 20011218
  12. ZYPREXA [Suspect]
     Route: 065
     Dates: start: 20031108, end: 20040402
  13. ZYPREXA [Suspect]
     Dosage: 15-30 MG
     Route: 048
     Dates: start: 20031108, end: 20040414
  14. GEODON [Concomitant]
     Dosage: 40-60 MG
     Dates: start: 20040501
  15. HALDOL [Concomitant]
     Dates: start: 20040901
  16. HALDOL [Concomitant]
     Dates: start: 20050125
  17. DEPAKOTE [Concomitant]
     Dosage: 1000-2000 MG
     Dates: start: 20041201, end: 20050316
  18. TOPAMAX [Concomitant]
     Indication: DEPRESSION
     Dosage: 25-200 MG
     Dates: start: 20040314
  19. TOPAMAX [Concomitant]
     Indication: MIGRAINE
     Dosage: 25-200 MG
     Dates: start: 20040314
  20. BENICAR HCT [Concomitant]
     Indication: HYPERTENSION
     Dates: start: 20070321
  21. BENICAR HCT [Concomitant]
     Dosage: 40-25 MG TABLET
     Dates: start: 20081114
  22. ZOLOFT [Concomitant]
     Indication: DEPRESSION
     Dosage: 25-100 MG
     Dates: start: 20050516
  23. METOPROLOL TARTRATE [Concomitant]
     Dosage: 12.5-25 MG
     Route: 048
     Dates: start: 20010720
  24. METFORMIN HCL [Concomitant]
     Dates: start: 20070321
  25. METFORMIN HCL [Concomitant]
     Route: 048
     Dates: start: 20080905
  26. KLONOPIN [Concomitant]
     Indication: ANXIETY
     Route: 048
  27. COGENTIN [Concomitant]
     Route: 048
     Dates: start: 20030820
  28. PROZAC [Concomitant]
     Dates: start: 20040309
  29. TEMAZEPAM [Concomitant]
     Dates: start: 20030617
  30. PROTONIX [Concomitant]
  31. XANAX [Concomitant]
     Indication: ANXIETY
     Dosage: 0.5-1 MG
     Dates: start: 20040309
  32. XANAX [Concomitant]
     Indication: PANIC ATTACK
     Dosage: 0.5-1 MG
     Dates: start: 20040309
  33. NEURONTIN [Concomitant]
     Dosage: 100-300 MG
     Dates: start: 20031128
  34. BENICAR [Concomitant]
  35. METFORMIN HCL [Concomitant]
  36. ASPIRIN [Concomitant]
     Dates: start: 20090101
  37. LIPITOR [Concomitant]
     Route: 048
     Dates: start: 20091023
  38. TRAZODONE [Concomitant]
     Route: 048
     Dates: start: 20090130
  39. OXYCODONE HCL AND ACETAMINOPHEN [Concomitant]
     Dosage: 5-325 MG
     Route: 048
     Dates: start: 20080901
  40. LEVOTHYROXINE [Concomitant]
     Dosage: 100 MCG
     Route: 048
     Dates: start: 20091023
  41. AMLODIPINE BESYLATE [Concomitant]
     Route: 048
     Dates: start: 20091023
  42. SIMVASTATIN [Concomitant]
     Route: 048
     Dates: start: 20091023

REACTIONS (6)
  - ARTHRALGIA [None]
  - CHEST PAIN [None]
  - DEPRESSIVE SYMPTOM [None]
  - SUICIDAL IDEATION [None]
  - SUICIDE ATTEMPT [None]
  - TYPE 2 DIABETES MELLITUS [None]
